FAERS Safety Report 4973911-6 (Version None)
Quarter: 2006Q2

REPORT INFORMATION
  Report Type: 
  Country: None (occurrence: None)
  Receive Date: 20060417
  Receipt Date: 20060406
  Transmission Date: 20061013
  Serious: Yes (Death)
  Sender: FDA-Public Use
  Company Number: US-JNJFOC-20060401569

PATIENT
  Sex: Female
  Weight: 90.72 kg

DRUGS (13)
  1. REMICADE [Suspect]
     Indication: RHEUMATOID ARTHRITIS
     Route: 042
  2. VICODIN [Concomitant]
  3. VICODIN [Concomitant]
     Dosage: 7.5 MG, 1-2 IN 1 DAY
  4. ENALAPRIL MALEATE [Concomitant]
  5. PROTONIX [Concomitant]
  6. FOLIC ACID [Concomitant]
  7. MOBIC [Concomitant]
  8. ZOLOFT [Concomitant]
  9. DETROL LA [Concomitant]
  10. PREDNISONE TAB [Concomitant]
     Dosage: 10-15 MG IN 1 DAY
  11. OXYCODONE [Concomitant]
  12. ARAVA [Concomitant]
  13. HYDROCHLOROTHIAZIDE [Concomitant]
     Dosage: 25-50 MG IN 1 DAY

REACTIONS (1)
  - BREAST CANCER METASTATIC [None]
